FAERS Safety Report 10448504 (Version 1)
Quarter: 2014Q3

REPORT INFORMATION
  Report Type: Spontaneous
  Country: CN (occurrence: CN)
  Receive Date: 20140911
  Receipt Date: 20140911
  Transmission Date: 20150326
  Serious: Yes (Congenital Anomaly, Other)
  Sender: FDA-Public Use
  Company Number: CN-GILEAD-2014-0114630

PATIENT

DRUGS (1)
  1. HEPSERA [Suspect]
     Active Substance: ADEFOVIR DIPIVOXIL
     Indication: PRODUCT USED FOR UNKNOWN INDICATION
     Route: 064

REACTIONS (7)
  - Heart disease congenital [Unknown]
  - Pulmonary valve stenosis [Unknown]
  - Mitral valve stenosis [Unknown]
  - Double outlet right ventricle [Unknown]
  - Ventricular septal defect [Unknown]
  - Pulmonary malformation [Unknown]
  - Dextrocardia [Unknown]

NARRATIVE: CASE EVENT DATE: 2011
